FAERS Safety Report 6752704-3 (Version None)
Quarter: 2010Q2

REPORT INFORMATION
  Report Type: 
  Country: None (occurrence: None)
  Receive Date: 20100528
  Receipt Date: 20100514
  Transmission Date: 20101027
  Serious: Yes (Other)
  Sender: FDA-Public Use
  Company Number: AUR-APL-2010-01313

PATIENT
  Age: 80 Year
  Sex: Female

DRUGS (5)
  1. LEVETIRACETAM [Suspect]
     Indication: CONVULSION
     Dosage: 1000MG, BID, ORAL
     Route: 048
  2. LEVOTHYROXINE SODIUM [Concomitant]
  3. AMLODIPINE [Concomitant]
  4. TELMISARTAN [Concomitant]
  5. SERTRALINE HCL [Concomitant]

REACTIONS (3)
  - ATRIAL FIBRILLATION [None]
  - DELIRIUM [None]
  - IDIOSYNCRATIC DRUG REACTION [None]
